FAERS Safety Report 4777376-9 (Version None)
Quarter: 2005Q3

REPORT INFORMATION
  Report Type: 
  Country: None (occurrence: None)
  Receive Date: 20050923
  Receipt Date: 20050915
  Transmission Date: 20060218
  Serious: Yes (Hospitalization, Other)
  Sender: FDA-Public Use
  Company Number: PHBS2005US13624

PATIENT
  Age: 32 Year
  Sex: Male

DRUGS (1)
  1. CYCLOSPORINE [Suspect]
     Indication: RENAL TRANSPLANT
     Route: 065

REACTIONS (13)
  - ANURIA [None]
  - BLOOD CREATININE INCREASED [None]
  - COMPLICATIONS OF TRANSPLANTED KIDNEY [None]
  - GRAFT COMPLICATION [None]
  - HAEMATOMA EVACUATION [None]
  - HAEMODIALYSIS [None]
  - HYPERTENSION [None]
  - NAUSEA [None]
  - NEPHROPATHY TOXIC [None]
  - PERIRENAL HAEMATOMA [None]
  - POST PROCEDURAL HAEMORRHAGE [None]
  - RENAL FAILURE ACUTE [None]
  - VOMITING [None]
